FAERS Safety Report 8270192-5 (Version None)
Quarter: 2012Q2

REPORT INFORMATION
  Report Type: 
  Country: None (occurrence: None)
  Receive Date: 20120410
  Receipt Date: 20120329
  Transmission Date: 20120825
  Serious: Yes (Other)
  Sender: FDA-Public Use
  Company Number: US-JNJFOC-20120402921

PATIENT
  Age: 67 Year
  Sex: Female
  Weight: 71.66 kg

DRUGS (17)
  1. IBUPROFEN [Suspect]
     Indication: RHEUMATOID ARTHRITIS
     Route: 065
     Dates: start: 20110101
  2. CYCLOBENZAPRINE HCL [Suspect]
     Dosage: TOOK THE PRODUCT FOR 12 YEARS BUT STOPPED TAKING IT 5 YEARS AGO
     Route: 065
     Dates: start: 20110101
  3. UNSPECIFIED BLOOD PRESSURE MEDS [Concomitant]
     Indication: HYPOTENSION
  4. CYCLOBENZAPRINE HCL [Suspect]
     Indication: PRODUCT USED FOR UNKNOWN INDICATION
     Route: 065
  5. NAPROXEN SODIUM [Suspect]
     Indication: FIBROMYALGIA
     Dosage: STOPPED TAKING 5 YEARS AGO
  6. GABAPENTIN [Concomitant]
     Indication: RHEUMATOID ARTHRITIS
     Dosage: FOR THE PAST THREE YEARS
  7. LIPITOR [Suspect]
     Indication: PRODUCT USED FOR UNKNOWN INDICATION
  8. PROTONIX [Suspect]
     Indication: GASTRITIS
     Dates: start: 20040101
  9. NAPROXEN SODIUM [Suspect]
     Indication: RHEUMATOID ARTHRITIS
     Dosage: STOPPED TAKING 5 YEARS AGO
  10. GABAPENTIN [Concomitant]
     Indication: SYSTEMIC LUPUS ERYTHEMATOSUS
     Dosage: FOR THE PAST THREE YEARS
  11. METFORMIN HCL [Concomitant]
     Indication: DIABETES MELLITUS
     Dosage: FOR THE PAST 3 YEARS
  12. CLARITIN [Concomitant]
     Indication: HYPERSENSITIVITY
     Dosage: FOR THE PAST 9 YEARS
  13. VITAMIN B-12 [Concomitant]
     Indication: ANAEMIA
     Dosage: FOR SEVERAL WEEKS
  14. ALL OTHER THERAPEUTIC PRODUCTS [Concomitant]
     Indication: LEUKAEMIA
     Dosage: UNSPECIFIED INJECTION
  15. IBUPROFEN [Suspect]
     Indication: SYSTEMIC LUPUS ERYTHEMATOSUS
     Route: 065
     Dates: start: 20110101
  16. LYRICA [Suspect]
     Indication: FIBROMYALGIA
     Dates: start: 20110315, end: 20110318
  17. VITAMIN B-12 [Concomitant]
     Dosage: FOR THE PAST 10 YEARS

REACTIONS (6)
  - DRY MOUTH [None]
  - VISION BLURRED [None]
  - GASTRIC DISORDER [None]
  - EYE HAEMORRHAGE [None]
  - NAUSEA [None]
  - BOWEL MOVEMENT IRREGULARITY [None]
